FAERS Safety Report 13463576 (Version 1)
Quarter: 2017Q2

REPORT INFORMATION
  Report Type: Spontaneous
  Country: IT (occurrence: IT)
  Receive Date: 20170420
  Receipt Date: 20170420
  Transmission Date: 20170830
  Serious: Yes (Other)
  Sender: FDA-Public Use
  Company Number: IT-JNJFOC-20170421080

PATIENT

DRUGS (45)
  1. VINBLASTINE [Suspect]
     Active Substance: VINBLASTINE
     Indication: MANTLE CELL LYMPHOMA
     Route: 065
  2. VINBLASTINE [Suspect]
     Active Substance: VINBLASTINE
     Indication: DIFFUSE LARGE B-CELL LYMPHOMA
     Route: 065
  3. DACARBAZINE. [Suspect]
     Active Substance: DACARBAZINE
     Indication: B-CELL LYMPHOMA
     Route: 065
  4. RITUXIMAB [Suspect]
     Active Substance: RITUXIMAB
     Indication: HODGKIN^S DISEASE
     Route: 065
  5. DACARBAZINE. [Suspect]
     Active Substance: DACARBAZINE
     Indication: MANTLE CELL LYMPHOMA
     Route: 065
  6. PREDNISONE. [Suspect]
     Active Substance: PREDNISONE
     Indication: NON-HODGKIN^S LYMPHOMA
     Route: 065
  7. OBINUTUZUMAB [Suspect]
     Active Substance: OBINUTUZUMAB
     Indication: NON-HODGKIN^S LYMPHOMA
     Route: 065
  8. OBINUTUZUMAB [Suspect]
     Active Substance: OBINUTUZUMAB
     Indication: DIFFUSE LARGE B-CELL LYMPHOMA
     Route: 065
  9. BLEOMYCIN [Suspect]
     Active Substance: BLEOMYCIN SULFATE
     Indication: DIFFUSE LARGE B-CELL LYMPHOMA
     Route: 065
  10. CYCLOPHOSPHAMIDE. [Suspect]
     Active Substance: CYCLOPHOSPHAMIDE
     Indication: DIFFUSE LARGE B-CELL LYMPHOMA
     Route: 065
  11. DOXORUBICIN HYDROCHLORIDE. [Suspect]
     Active Substance: DOXORUBICIN HYDROCHLORIDE
     Indication: HODGKIN^S DISEASE
     Route: 065
  12. DOXORUBICIN HYDROCHLORIDE. [Suspect]
     Active Substance: DOXORUBICIN HYDROCHLORIDE
     Indication: NON-HODGKIN^S LYMPHOMA
     Route: 065
  13. DOXORUBICIN HYDROCHLORIDE. [Suspect]
     Active Substance: DOXORUBICIN HYDROCHLORIDE
     Indication: DIFFUSE LARGE B-CELL LYMPHOMA
     Route: 065
  14. BLEOMYCIN [Suspect]
     Active Substance: BLEOMYCIN SULFATE
     Indication: B-CELL LYMPHOMA
     Route: 065
  15. VINBLASTINE [Suspect]
     Active Substance: VINBLASTINE
     Indication: HODGKIN^S DISEASE
     Route: 065
  16. VINBLASTINE [Suspect]
     Active Substance: VINBLASTINE
     Indication: NON-HODGKIN^S LYMPHOMA
     Route: 065
  17. CYCLOPHOSPHAMIDE. [Suspect]
     Active Substance: CYCLOPHOSPHAMIDE
     Indication: MANTLE CELL LYMPHOMA
     Route: 065
  18. CYCLOPHOSPHAMIDE. [Suspect]
     Active Substance: CYCLOPHOSPHAMIDE
     Indication: B-CELL LYMPHOMA
     Route: 065
  19. BLEOMYCIN [Suspect]
     Active Substance: BLEOMYCIN SULFATE
     Indication: NON-HODGKIN^S LYMPHOMA
     Route: 065
  20. DACARBAZINE. [Suspect]
     Active Substance: DACARBAZINE
     Indication: NON-HODGKIN^S LYMPHOMA
     Route: 065
  21. VINCRISTINE [Suspect]
     Active Substance: VINCRISTINE
     Indication: B-CELL LYMPHOMA
     Route: 065
  22. PREDNISONE. [Suspect]
     Active Substance: PREDNISONE
     Indication: HODGKIN^S DISEASE
     Route: 065
  23. PREDNISONE. [Suspect]
     Active Substance: PREDNISONE
     Indication: DIFFUSE LARGE B-CELL LYMPHOMA
     Route: 065
  24. OBINUTUZUMAB [Suspect]
     Active Substance: OBINUTUZUMAB
     Indication: MANTLE CELL LYMPHOMA
     Route: 065
  25. RITUXIMAB [Suspect]
     Active Substance: RITUXIMAB
     Indication: DIFFUSE LARGE B-CELL LYMPHOMA
     Route: 065
  26. CYCLOPHOSPHAMIDE. [Suspect]
     Active Substance: CYCLOPHOSPHAMIDE
     Indication: NON-HODGKIN^S LYMPHOMA
     Route: 065
  27. VINCRISTINE [Suspect]
     Active Substance: VINCRISTINE
     Indication: HODGKIN^S DISEASE
     Route: 065
  28. VINCRISTINE [Suspect]
     Active Substance: VINCRISTINE
     Indication: NON-HODGKIN^S LYMPHOMA
     Route: 065
  29. OBINUTUZUMAB [Suspect]
     Active Substance: OBINUTUZUMAB
     Indication: HODGKIN^S DISEASE
     Route: 065
  30. OBINUTUZUMAB [Suspect]
     Active Substance: OBINUTUZUMAB
     Indication: B-CELL LYMPHOMA
     Route: 065
  31. RITUXIMAB [Suspect]
     Active Substance: RITUXIMAB
     Indication: NON-HODGKIN^S LYMPHOMA
     Route: 065
  32. RITUXIMAB [Suspect]
     Active Substance: RITUXIMAB
     Indication: B-CELL LYMPHOMA
     Route: 065
  33. DOXORUBICIN HYDROCHLORIDE. [Suspect]
     Active Substance: DOXORUBICIN HYDROCHLORIDE
     Indication: B-CELL LYMPHOMA
     Route: 065
  34. BLEOMYCIN [Suspect]
     Active Substance: BLEOMYCIN SULFATE
     Indication: MANTLE CELL LYMPHOMA
     Route: 065
  35. VINBLASTINE [Suspect]
     Active Substance: VINBLASTINE
     Indication: B-CELL LYMPHOMA
     Route: 065
  36. CYCLOPHOSPHAMIDE. [Suspect]
     Active Substance: CYCLOPHOSPHAMIDE
     Indication: HODGKIN^S DISEASE
     Route: 065
  37. RITUXIMAB [Suspect]
     Active Substance: RITUXIMAB
     Indication: MANTLE CELL LYMPHOMA
     Route: 065
  38. DOXORUBICIN HYDROCHLORIDE. [Suspect]
     Active Substance: DOXORUBICIN HYDROCHLORIDE
     Indication: MANTLE CELL LYMPHOMA
     Route: 065
  39. BLEOMYCIN [Suspect]
     Active Substance: BLEOMYCIN SULFATE
     Indication: HODGKIN^S DISEASE
     Route: 065
  40. DACARBAZINE. [Suspect]
     Active Substance: DACARBAZINE
     Indication: HODGKIN^S DISEASE
     Route: 065
  41. DACARBAZINE. [Suspect]
     Active Substance: DACARBAZINE
     Indication: DIFFUSE LARGE B-CELL LYMPHOMA
     Route: 065
  42. VINCRISTINE [Suspect]
     Active Substance: VINCRISTINE
     Indication: MANTLE CELL LYMPHOMA
     Route: 065
  43. VINCRISTINE [Suspect]
     Active Substance: VINCRISTINE
     Indication: DIFFUSE LARGE B-CELL LYMPHOMA
     Route: 065
  44. PREDNISONE. [Suspect]
     Active Substance: PREDNISONE
     Indication: MANTLE CELL LYMPHOMA
     Route: 065
  45. PREDNISONE. [Suspect]
     Active Substance: PREDNISONE
     Indication: B-CELL LYMPHOMA
     Route: 065

REACTIONS (24)
  - Neutropenia [Unknown]
  - Constipation [Unknown]
  - Pulmonary embolism [Unknown]
  - Anaemia [Unknown]
  - Stomatitis [Unknown]
  - Neuropathy peripheral [Unknown]
  - Ejection fraction decreased [Unknown]
  - Decreased appetite [Unknown]
  - Hyperglycaemia [Unknown]
  - Acute coronary syndrome [Unknown]
  - Febrile neutropenia [Unknown]
  - Infection [Unknown]
  - Cardiotoxicity [Unknown]
  - Product use in unapproved indication [Unknown]
  - Fatigue [Unknown]
  - Pneumonitis [Unknown]
  - Infusion related reaction [Unknown]
  - Ventricular hypertrophy [Unknown]
  - Nausea [Unknown]
  - Transaminases increased [Unknown]
  - Vascular access complication [Unknown]
  - Off label use [Unknown]
  - Thrombocytopenia [Unknown]
  - Diarrhoea [Unknown]
